FAERS Safety Report 9099262 (Version 4)
Quarter: 2013Q1

REPORT INFORMATION
  Report Type: Report from Study
  Country: US (occurrence: US)
  Receive Date: 20130213
  Receipt Date: 20130328
  Transmission Date: 20140127
  Serious: Yes (Death, Hospitalization)
  Sender: FDA-Public Use
  Company Number: US-JNJFOC-20130201683

PATIENT
  Age: 41 Year
  Sex: Male
  Weight: 78.6 kg

DRUGS (12)
  1. USTEKINUMAB [Suspect]
     Indication: PSORIASIS
     Route: 058
     Dates: start: 20101119
  2. USTEKINUMAB [Suspect]
     Indication: PSORIASIS
     Route: 058
     Dates: start: 20100223
  3. USTEKINUMAB [Suspect]
     Indication: PSORIASIS
     Route: 058
     Dates: start: 20100121
  4. USTEKINUMAB [Suspect]
     Indication: PSORIASIS
     Route: 058
     Dates: start: 20121116
  5. USTEKINUMAB [Suspect]
     Indication: PSORIASIS
     Route: 058
     Dates: start: 20110224
  6. USTEKINUMAB [Suspect]
     Indication: PSORIASIS
     Route: 058
     Dates: start: 20120420
  7. USTEKINUMAB [Suspect]
     Indication: PSORIASIS
     Route: 058
     Dates: start: 20120720
  8. USTEKINUMAB [Suspect]
     Indication: PSORIASIS
     Route: 058
     Dates: start: 20100817
  9. PROTOPIC [Concomitant]
     Indication: PSORIASIS
     Route: 061
     Dates: start: 2006
  10. PROPECIA [Concomitant]
     Route: 048
     Dates: start: 20080417
  11. CLODERM [Concomitant]
     Indication: PSORIASIS
     Route: 061
     Dates: start: 20120420
  12. VECTICAL [Concomitant]
     Indication: PSORIASIS
     Route: 061

REACTIONS (3)
  - Pneumonia [Fatal]
  - Rhabdomyolysis [Fatal]
  - Cardiac arrest [Fatal]
